FAERS Safety Report 7701681-7 (Version None)
Quarter: 2011Q3

REPORT INFORMATION
  Report Type: 
  Country: None (occurrence: None)
  Receive Date: 20110822
  Receipt Date: 20110809
  Transmission Date: 20111222
  Serious: Yes (Other)
  Sender: FDA-Public Use
  Company Number: US-CELGENEUS-163-21880-11081217

PATIENT

DRUGS (5)
  1. TEMSIROLIMUS [Suspect]
     Dosage: 20 MILLIGRAM
     Route: 041
  2. REVLIMID [Suspect]
     Indication: MULTIPLE MYELOMA
     Dosage: 15 MILLIGRAM
     Route: 048
  3. REVLIMID [Suspect]
     Dosage: 20-25 MG
     Route: 048
  4. GEMFIBROZIL [Concomitant]
     Dosage: 600 MILLIGRAM
     Route: 065
  5. TEMSIROLIMUS [Suspect]
     Indication: MULTIPLE MYELOMA
     Dosage: 15 MILLIGRAM
     Route: 041

REACTIONS (25)
  - DRUG INTERACTION [None]
  - NAUSEA [None]
  - DIZZINESS [None]
  - CELLULITIS [None]
  - HYPOPHOSPHATAEMIA [None]
  - LYMPHOPENIA [None]
  - THROMBOCYTOPENIA [None]
  - FATIGUE [None]
  - ANAEMIA [None]
  - RASH [None]
  - NEUTROPENIA [None]
  - HYPERTRIGLYCERIDAEMIA [None]
  - SINUSITIS [None]
  - UPPER RESPIRATORY TRACT INFECTION [None]
  - HYPOKALAEMIA [None]
  - DYSGEUSIA [None]
  - CONSTIPATION [None]
  - DEPRESSION [None]
  - DECREASED APPETITE [None]
  - INSOMNIA [None]
  - HYPERCHOLESTEROLAEMIA [None]
  - HERPES VIRUS INFECTION [None]
  - PNEUMONIA [None]
  - ALANINE AMINOTRANSFERASE INCREASED [None]
  - ASPARTATE AMINOTRANSFERASE INCREASED [None]
